FAERS Safety Report 8375769-4 (Version None)
Quarter: 2012Q2

REPORT INFORMATION
  Report Type: 
  Country: None (occurrence: None)
  Receive Date: 20120518
  Receipt Date: 20120518
  Transmission Date: 20120825
  Serious: No
  Sender: FDA-Public Use
  Company Number: None

PATIENT
  Sex: Male
  Weight: 79.3 kg

DRUGS (2)
  1. PEGASYS [Suspect]
     Indication: HEPATITIS C
     Dosage: 180 MCG ONCER PER WK SQ
     Route: 058
     Dates: start: 20120413, end: 20120420
  2. RIBAVIRIN [Suspect]
     Indication: HEPATITIS C
     Dosage: RIBAVIRIN 600 MG BID PO
     Route: 048
     Dates: start: 20120413, end: 20120420

REACTIONS (1)
  - DIPLOPIA [None]
